FAERS Safety Report 7169770-6 (Version None)
Quarter: 2010Q4

REPORT INFORMATION
  Report Type: 
  Country: None (occurrence: None)
  Receive Date: 20101217
  Receipt Date: 20100423
  Transmission Date: 20110411
  Serious: No
  Sender: FDA-Public Use
  Company Number: A0856489A

PATIENT
  Age: 51 Year
  Sex: Female

DRUGS (3)
  1. SORIATANE [Suspect]
     Indication: PSORIASIS
     Route: 048
  2. PROVENTIL [Concomitant]
  3. RANITIDINE HCL [Concomitant]

REACTIONS (2)
  - ALOPECIA [None]
  - DRY SKIN [None]
